FAERS Safety Report 17216433 (Version 2)
Quarter: 2020Q1

REPORT INFORMATION
  Report Type: Not Available
  Country: US (occurrence: US)
  Receive Date: 20191230
  Receipt Date: 20200115
  Transmission Date: 20200409
  Serious: Yes (Death)
  Sender: FDA-Public Use
  Company Number: US-NEUROCRINE BIOSCIENCES INC.-2019NBI04025

PATIENT
  Sex: Female

DRUGS (17)
  1. LEVOTHYROXINE. [Concomitant]
     Active Substance: LEVOTHYROXINE
  2. FOLIC ACID. [Concomitant]
     Active Substance: FOLIC ACID
  3. LOSARTAN. [Concomitant]
     Active Substance: LOSARTAN
  4. IRON [Concomitant]
     Active Substance: IRON
  5. GEODON [Concomitant]
     Active Substance: ZIPRASIDONE HYDROCHLORIDE\ZIPRASIDONE MESYLATE
     Indication: SCHIZOAFFECTIVE DISORDER
     Route: 048
  6. RANITIDINE. [Concomitant]
     Active Substance: RANITIDINE
  7. METHOCARBAMOL. [Concomitant]
     Active Substance: METHOCARBAMOL
  8. LACTULOSE. [Concomitant]
     Active Substance: LACTULOSE
  9. INGREZZA [Suspect]
     Active Substance: VALBENAZINE
     Indication: TARDIVE DYSKINESIA
     Route: 048
     Dates: start: 2019
  10. GLIPIZIDE. [Concomitant]
     Active Substance: GLIPIZIDE
  11. ASPIRIN. [Concomitant]
     Active Substance: ASPIRIN
  12. LEVETIRACETAM. [Concomitant]
     Active Substance: LEVETIRACETAM
  13. TYLENOL PM [Concomitant]
     Active Substance: ACETAMINOPHEN\DIPHENHYDRAMINE
  14. SIMVASTATIN. [Concomitant]
     Active Substance: SIMVASTATIN
  15. FLUOXETINE [Concomitant]
     Active Substance: FLUOXETINE HYDROCHLORIDE
  16. METOPROLOL. [Concomitant]
     Active Substance: METOPROLOL
  17. ALEVE [Concomitant]
     Active Substance: NAPROXEN SODIUM

REACTIONS (1)
  - Death [Fatal]

NARRATIVE: CASE EVENT DATE: 2019
